FAERS Safety Report 9745047 (Version 1)
Quarter: 2013Q4

REPORT INFORMATION
  Report Type: Report from Study
  Country: US (occurrence: US)
  Receive Date: 20131211
  Receipt Date: 20131211
  Transmission Date: 20140711
  Serious: Yes (Death)
  Sender: FDA-Public Use
  Company Number: US-ROCHE-1316003

PATIENT
  Age: 60 Year
  Sex: Male

DRUGS (8)
  1. ERLOTINIB [Suspect]
     Indication: HEPATOCELLULAR CARCINOMA
     Route: 048
     Dates: start: 20131024
  2. BEVACIZUMAB [Suspect]
     Indication: HEPATOCELLULAR CARCINOMA
     Dosage: EVERY 2 WEEKS
     Route: 042
     Dates: start: 20131010
  3. FUROSEMIDE [Concomitant]
  4. METHADONE [Concomitant]
  5. HYDROMORPHONE [Concomitant]
  6. MAGNESIUM OXIDE [Concomitant]
  7. REGLAN [Concomitant]
  8. PANTOPRAZOL [Concomitant]

REACTIONS (1)
  - Disease progression [Fatal]
